FAERS Safety Report 5345990-8 (Version None)
Quarter: 2007Q2

REPORT INFORMATION
  Report Type: 
  Country: None (occurrence: None)
  Receive Date: 20070605
  Receipt Date: 20070531
  Transmission Date: 20071010
  Serious: Yes (Other)
  Sender: FDA-Public Use
  Company Number: PHEH2007US04161

PATIENT
  Age: 69 Year
  Sex: Male

DRUGS (5)
  1. LOTREL [Suspect]
     Indication: HYPERTENSION
     Dosage: 5/20 MG, QD
     Route: 048
     Dates: start: 20000728, end: 20070402
  2. VITAMIN CAP [Concomitant]
     Dosage: UNK, QD
     Route: 048
  3. ATENOLOL [Concomitant]
     Indication: HYPERTENSION
     Dosage: 100 MG, QD
     Route: 048
     Dates: start: 20000701
  4. ASPIRIN [Concomitant]
     Dosage: 325 MG, QD
     Route: 048
     Dates: start: 19970101
  5. ALLEGRA [Concomitant]
     Indication: HYPERSENSITIVITY
     Dosage: 180 MG, QD
     Route: 048
     Dates: start: 20030401

REACTIONS (3)
  - NEUROPATHY [None]
  - OEDEMA PERIPHERAL [None]
  - PARAESTHESIA [None]
